FAERS Safety Report 8791013 (Version 1)
Quarter: 2012Q4

REPORT INFORMATION
  Report Type: Spontaneous
  Country: US (occurrence: None)
  Receive Date: 20120910
  Receipt Date: 20120910
  Transmission Date: 20130627
  Serious: Yes (Death)
  Sender: FDA-Public Use
  Company Number: CIP-2012-00312

PATIENT

DRUGS (4)
  1. CARBOPLATIN [Suspect]
     Dosage: area under the curve 6 (every 3 weeks), intravenous
  2. PACLITAXEL [Suspect]
     Route: 042
  3. IPILIMUMAB [Suspect]
     Route: 042
  4. PLACEBO [Suspect]
     Route: 042

REACTIONS (1)
  - Toxicity to various agents [None]
